FAERS Safety Report 25899882 (Version 1)
Quarter: 2025Q4

REPORT INFORMATION
  Report Type: Report from Study
  Country: EU (occurrence: EU)
  Receive Date: 20251009
  Receipt Date: 20251009
  Transmission Date: 20260117
  Serious: Yes (Life-Threatening, Hospitalization, Other)
  Sender: JOHNSON AND JOHNSON
  Company Number: EU-JNJFOC-20250736616

PATIENT
  Age: 64 Year
  Sex: Female
  Weight: 61.0 kg

DRUGS (3)
  1. TECLISTAMAB [Suspect]
     Active Substance: TECLISTAMAB
     Indication: Plasma cell myeloma
     Dosage: THERAPY END DATE: 26-JUL-2023
     Route: 065
     Dates: start: 20230726
  2. TECLISTAMAB [Suspect]
     Active Substance: TECLISTAMAB
     Dosage: THERAPY END DATE: 28-JUL-2023?STEP UP DOSE 2
     Route: 065
     Dates: start: 20230728
  3. TECLISTAMAB [Suspect]
     Active Substance: TECLISTAMAB
     Dosage: FIRST MAINTENANCE DOSE
     Route: 065
     Dates: start: 20230816

REACTIONS (3)
  - Thrombocytopenia [Recovered/Resolved]
  - Immune effector cell-associated neurotoxicity syndrome [Recovered/Resolved]
  - Anaemia [Recovered/Resolved]

NARRATIVE: CASE EVENT DATE: 20230726
